FAERS Safety Report 17015183 (Version 2)
Quarter: 2019Q4

REPORT INFORMATION
  Report Type: Spontaneous
  Country: US (occurrence: US)
  Receive Date: 20191111
  Receipt Date: 20191220
  Transmission Date: 20200122
  Serious: No
  Sender: FDA-Public Use
  Company Number: US-ASTRAZENECA-2019SF47529

PATIENT
  Sex: Female
  Weight: 68 kg

DRUGS (2)
  1. SYMBICORT [Suspect]
     Active Substance: BUDESONIDE\FORMOTEROL FUMARATE DIHYDRATE
     Indication: RESPIRATORY DISORDER
     Dosage: 80/4.5 MCG, TWO PUFFS,TWO TIMES A DAY.
     Route: 055
     Dates: start: 201803
  2. SYMBICORT [Suspect]
     Active Substance: BUDESONIDE\FORMOTEROL FUMARATE DIHYDRATE
     Indication: CHRONIC OBSTRUCTIVE PULMONARY DISEASE
     Dosage: 80/4.5 MCG, TWO PUFFS,TWO TIMES A DAY.
     Route: 055
     Dates: start: 201803

REACTIONS (3)
  - Intentional product misuse [Unknown]
  - Device issue [Unknown]
  - Dyspnoea [Unknown]
